FAERS Safety Report 6930655-9 (Version None)
Quarter: 2010Q3

REPORT INFORMATION
  Report Type: 
  Country: None (occurrence: None)
  Receive Date: 20100818
  Receipt Date: 20100528
  Transmission Date: 20110219
  Serious: No
  Sender: FDA-Public Use
  Company Number: A0861981A

PATIENT
  Age: 75 Year
  Sex: Male

DRUGS (4)
  1. COREG CR [Suspect]
     Indication: BLOOD PRESSURE
     Dosage: 40MG PER DAY
     Route: 048
     Dates: start: 20020101
  2. ASPIRIN [Concomitant]
  3. MULTIPLE VITAMIN [Concomitant]
  4. LASIX [Concomitant]

REACTIONS (4)
  - DEPRESSED MOOD [None]
  - HEART RATE DECREASED [None]
  - HYPOKINESIA [None]
  - MUSCLE SPASMS [None]
